FAERS Safety Report 7171380-1 (Version None)
Quarter: 2010Q4

REPORT INFORMATION
  Report Type: 
  Country: None (occurrence: None)
  Receive Date: 20101123
  Receipt Date: 20100929
  Transmission Date: 20110411
  Serious: No
  Sender: FDA-Public Use
  Company Number: 019611

PATIENT
  Sex: Female
  Weight: 76.2043 kg

DRUGS (13)
  1. CIMZIA [Suspect]
     Indication: CROHN'S DISEASE
     Dosage: (400 MG 1X/2 WEEKS SUBCUTANEOUS)
     Route: 058
     Dates: start: 20100909
  2. PENTASA [Concomitant]
  3. ZANTAC /00550802/ [Concomitant]
  4. IMURAN [Concomitant]
  5. NEXIUM /01479303/ [Concomitant]
  6. ZOFRAN [Concomitant]
  7. FOSAMAX [Concomitant]
  8. EVISTA /01303201/ [Concomitant]
  9. LEVSIN [Concomitant]
  10. ROBINUL [Concomitant]
  11. LUNESTA [Concomitant]
  12. IMITREX [Concomitant]
  13. LACRISERT [Concomitant]

REACTIONS (2)
  - ABDOMINAL PAIN [None]
  - PAIN [None]
